FAERS Safety Report 6110001-3 (Version None)
Quarter: 2009Q1

REPORT INFORMATION
  Report Type: 
  Country: None (occurrence: None)
  Receive Date: 20090310
  Receipt Date: 20081113
  Transmission Date: 20090719
  Serious: No
  Sender: FDA-Public Use
  Company Number: A0756180A

PATIENT
  Age: 35 Year

DRUGS (1)
  1. NICORETTE [Suspect]
     Dates: start: 20081112

REACTIONS (2)
  - INTENTIONAL DRUG MISUSE [None]
  - THROAT IRRITATION [None]
